FAERS Safety Report 5819830-4 (Version None)
Quarter: 2008Q3

REPORT INFORMATION
  Report Type: 
  Country: None (occurrence: None)
  Receive Date: 20080723
  Receipt Date: 20080716
  Transmission Date: 20090109
  Serious: Yes (Disabling)
  Sender: FDA-Public Use
  Company Number: FI-AMGEN-US296233

PATIENT
  Sex: Female

DRUGS (6)
  1. ENBREL [Suspect]
     Indication: RHEUMATOID ARTHRITIS
     Route: 065
     Dates: start: 20030101, end: 20070704
  2. IDEOS [Concomitant]
     Dosage: DOSE UNKOWN, 1 X 2
     Route: 048
  3. CIPRAMIL [Concomitant]
     Dosage: 60 MG, DOSE FREQUENCY UNKNOWN
     Route: 048
  4. COZAAR [Concomitant]
     Dosage: 50 MG, DOSE FREQUENCY UNKNOWN
     Route: 048
  5. ARAVA [Concomitant]
     Indication: RHEUMATOID ARTHRITIS
     Dosage: 20 MG, DOSE FREQUENCY UNKNOWN
     Route: 048
     Dates: start: 20070803, end: 20080514
  6. PREDNISONE TAB [Concomitant]
     Indication: RHEUMATOID ARTHRITIS
     Dosage: 2.5 - 7.5 MG/DAY
     Route: 048

REACTIONS (5)
  - CEREBRAL INFARCTION [None]
  - DEMYELINATION [None]
  - DRUG INEFFECTIVE [None]
  - DUODENAL ULCER [None]
  - LUNG INFECTION PSEUDOMONAL [None]
